FAERS Safety Report 6015619-4 (Version None)
Quarter: 2008Q4

REPORT INFORMATION
  Report Type: 
  Country: None (occurrence: None)
  Receive Date: 20081222
  Receipt Date: 20080721
  Transmission Date: 20090506
  Serious: No
  Sender: FDA-Public Use
  Company Number: US-BAYER-200813118BCC

PATIENT
  Sex: Female
  Weight: 63 kg

DRUGS (2)
  1. ALEVE (CAPLET) [Suspect]
     Indication: ARTHRALGIA
     Route: 048
     Dates: start: 20070101, end: 20080721
  2. ALEVE (CAPLET) [Suspect]
     Route: 048

REACTIONS (1)
  - WEIGHT INCREASED [None]
